FAERS Safety Report 8572900 (Version 2)
Quarter: 2012Q4

REPORT INFORMATION
  Report Type: 
  Country: AT (occurrence: AT)
  Receive Date: 20120522
  Receipt Date: 20121212
  Transmission Date: 20130627
  Serious: Yes (Hospitalization)
  Sender: FDA-Public Use
  Company Number: PHHO2012AT007414

PATIENT
  Age: 73 Year
  Sex: Male

DRUGS (7)
  1. ALISKIREN [Suspect]
     Indication: CARDIAC FAILURE
     Dosage: UNK
     Route: 048
     Dates: start: 20090515, end: 20120413
  2. ALISKIREN [Suspect]
     Dosage: UNK
     Route: 048
     Dates: start: 20120517
  3. MARCUMAR [Concomitant]
     Indication: ATRIAL FIBRILLATION
     Dosage: On demand
     Dates: start: 1998
  4. LASIX [Concomitant]
     Indication: CARDIAC FAILURE CHRONIC
     Dosage: 125 mg, QD
     Route: 048
     Dates: start: 20100119
  5. DIGIMERCK [Concomitant]
     Indication: ATRIAL FIBRILLATION
     Dosage: 0.07 mg, QD
     Route: 048
     Dates: start: 1998
  6. SIMVASTATIN [Concomitant]
     Indication: HYPERLIPIDAEMIA
     Dosage: 40 mg, QD
     Route: 048
     Dates: start: 1998
  7. EPLERENONE [Concomitant]
     Indication: CARDIAC FAILURE CONGESTIVE
     Dosage: 25 mg, QD
     Route: 048
     Dates: start: 1998, end: 20120412

REACTIONS (2)
  - Cardiac failure congestive [Recovered/Resolved]
  - Polycythaemia [Recovered/Resolved]
